FAERS Safety Report 4365557-8 (Version None)
Quarter: 2004Q2

REPORT INFORMATION
  Report Type: 
  Country: None (occurrence: None)
  Receive Date: 20040526
  Receipt Date: 20040510
  Transmission Date: 20050107
  Serious: Yes (Hospitalization)
  Sender: FDA-Public Use
  Company Number: PL-BRISTOL-MYERS SQUIBB COMPANY-12582615

PATIENT
  Age: 6 Year
  Sex: Male

DRUGS (2)
  1. PARAPLATIN [Suspect]
     Indication: EPENDYMOMA MALIGNANT
     Dosage: THERAPY DATES: 04-FEB-2004 TO 16-APR-2004
     Route: 042
     Dates: start: 20040416, end: 20040416
  2. IRINOTECAN [Suspect]
     Indication: EPENDYMOMA MALIGNANT
     Dosage: THERAPY DATES: 04-FEB-2004 TO 25-APR-2004
     Route: 042
     Dates: start: 20040425, end: 20040425

REACTIONS (1)
  - PNEUMONIA [None]
